FAERS Safety Report 8796914 (Version 1)
Quarter: 2012Q4

REPORT INFORMATION
  Report Type: 
  Country: GB (occurrence: GB)
  Receive Date: 20120920
  Receipt Date: 20120920
  Transmission Date: 20130627
  Serious: Yes (Other)
  Sender: FDA-Public Use
  Company Number: PHFR2012GB004688

PATIENT
  Age: 53 Year
  Sex: Female

DRUGS (4)
  1. CLOZARIL [Suspect]
     Indication: SCHIZOPHRENIA
     Dosage: 325 mg, (175 mg OD and 150 mg OD)
     Route: 048
     Dates: start: 20041108, end: 20120824
  2. FLUOXETINE [Concomitant]
     Indication: DEPRESSED MOOD
     Dosage: 20 mg, UNK
     Route: 048
  3. MOVICOL [Concomitant]
     Indication: CONSTIPATION
     Dosage: 1 Sachet
     Route: 048
  4. LANSOPRAZOLE [Concomitant]
     Indication: DYSPEPSIA
     Dosage: 30 mg, QD
     Route: 048

REACTIONS (5)
  - Asthma [Not Recovered/Not Resolved]
  - Hyperlipidaemia [Not Recovered/Not Resolved]
  - Urinary incontinence [Not Recovered/Not Resolved]
  - Electrocardiogram abnormal [Recovered/Resolved]
  - Arrhythmia [Unknown]
